FAERS Safety Report 21742283 (Version 1)
Quarter: 2022Q4

REPORT INFORMATION
  Report Type: Spontaneous
  Country: US (occurrence: None)
  Receive Date: 20221216
  Receipt Date: 20221216
  Transmission Date: 20230113
  Serious: Yes (Hospitalization)
  Sender: FDA-Public Use
  Company Number: None

PATIENT
  Sex: Female

DRUGS (1)
  1. OPSUMIT [Suspect]
     Active Substance: MACITENTAN
     Indication: Pulmonary arterial hypertension
     Dosage: FREQUENCY : DAILY;?
     Route: 048
     Dates: start: 202204

REACTIONS (8)
  - Anaphylactic reaction [None]
  - Drug reaction with eosinophilia and systemic symptoms [None]
  - Heart rate decreased [None]
  - Hypotension [None]
  - Mouth ulceration [None]
  - Oral mucosal eruption [None]
  - Generalised oedema [None]
  - General physical health deterioration [None]
